FAERS Safety Report 7776244-8 (Version None)
Quarter: 2011Q3

REPORT INFORMATION
  Report Type: 
  Country: None (occurrence: None)
  Receive Date: 20110926
  Receipt Date: 20110921
  Transmission Date: 20111222
  Serious: No
  Sender: FDA-Public Use
  Company Number: US-PFIZER INC-2011224687

PATIENT
  Sex: Female
  Weight: 90.7 kg

DRUGS (1)
  1. LYRICA [Suspect]
     Indication: FIBROMYALGIA
     Dosage: UNK

REACTIONS (6)
  - FEELING ABNORMAL [None]
  - FEAR [None]
  - FORMICATION [None]
  - SWOLLEN TONGUE [None]
  - ANXIETY [None]
  - NAUSEA [None]
